FAERS Safety Report 4787405-4 (Version None)
Quarter: 2005Q3

REPORT INFORMATION
  Report Type: 
  Country: None (occurrence: None)
  Receive Date: 20050926
  Receipt Date: 20050627
  Transmission Date: 20060218
  Serious: No
  Sender: FDA-Public Use
  Company Number: 215680

PATIENT
  Age: 56 Year
  Sex: Male

DRUGS (3)
  1. AVASTIN [Suspect]
     Indication: PROSTATE CANCER
     Dosage: 5 MG/KG
     Dates: start: 20050622
  2. CARBOPLATIN [Suspect]
  3. GEMZAR [Suspect]

REACTIONS (1)
  - BONE PAIN [None]
